FAERS Safety Report 8256646-6 (Version None)
Quarter: 2012Q2

REPORT INFORMATION
  Report Type: 
  Country: None (occurrence: None)
  Receive Date: 20120403
  Receipt Date: 20120326
  Transmission Date: 20120825
  Serious: Yes (Hospitalization)
  Sender: FDA-Public Use
  Company Number: JP-MERCK-1203USA01967

PATIENT
  Age: 16 Year
  Sex: Male
  Weight: 47 kg

DRUGS (10)
  1. PROGRAF [Suspect]
     Route: 048
     Dates: start: 20110817, end: 20110825
  2. PROGRAF [Suspect]
     Route: 048
     Dates: start: 20110826, end: 20110828
  3. PROGRAF [Suspect]
     Route: 048
     Dates: start: 20110902, end: 20110904
  4. PROGRAF [Suspect]
     Indication: COLITIS ULCERATIVE
     Route: 048
     Dates: start: 20110905, end: 20110912
  5. PREDNISOLONE [Concomitant]
     Route: 065
     Dates: end: 20111013
  6. COTRIM [Concomitant]
     Indication: INFECTION PROPHYLAXIS
     Route: 065
     Dates: start: 20110817, end: 20110912
  7. PENTASA [Concomitant]
     Route: 048
     Dates: end: 20111013
  8. PROGRAF [Suspect]
     Route: 048
     Dates: start: 20110829, end: 20110901
  9. PEPCID RPD [Suspect]
     Route: 048
     Dates: end: 20111013
  10. IMURAN [Suspect]
     Indication: COLITIS ULCERATIVE
     Route: 048
     Dates: end: 20111013

REACTIONS (2)
  - PANCYTOPENIA [None]
  - DRUG INTERACTION [None]
